FAERS Safety Report 8677045 (Version 2)
Quarter: 2012Q4

REPORT INFORMATION
  Report Type: 
  Country: NO (occurrence: NO)
  Receive Date: 20120723
  Receipt Date: 20121002
  Transmission Date: 20130627
  Serious: Yes (Other)
  Sender: FDA-Public Use
  Company Number: NO-ACCORD-014111

PATIENT
  Sex: Male

DRUGS (7)
  1. AZATHIOPRINE [Suspect]
     Indication: MICROSCOPIC POLYANGIITIS
     Dosage: Unk
     Route: 065
  2. TACROLIMUS [Suspect]
     Indication: MICROSCOPIC POLYANGIITIS
  3. CYCLOSPORIN A [Suspect]
     Indication: MICROSCOPIC POLYANGIITIS
     Dosage: 2.4 gm, Unknown
     Route: 065
  4. CYCLOPHOSPHAMIDE [Suspect]
     Indication: MICROSCOPIC POLYANGIITIS
     Dosage: Unk
     Route: 065
  5. MABTHERA [Suspect]
     Indication: MICROSCOPIC POLYANGIITIS
     Dosage: 5000 mg
     Route: 042
     Dates: start: 200706
  6. CELLCEPT [Suspect]
     Indication: MICROSCOPIC POLYANGIITIS
  7. METHOTREXATE [Suspect]
     Indication: MICROSCOPIC POLYANGIITIS
     Dosage: Unk
     Route: 065

REACTIONS (4)
  - Hypogammaglobulinaemia [Unknown]
  - Neutropenia [Recovered/Resolved]
  - Off label use [Unknown]
  - Renal transplant [None]
